FAERS Safety Report 7816833-5 (Version None)
Quarter: 2011Q4

REPORT INFORMATION
  Report Type: 
  Country: None (occurrence: None)
  Receive Date: 20111017
  Receipt Date: 20111012
  Transmission Date: 20120403
  Serious: Yes (Death)
  Sender: FDA-Public Use
  Company Number: US-ASTELLAS-2011US004504

PATIENT
  Sex: Female

DRUGS (1)
  1. ERLOTINIB HYDROCHLORIDE [Suspect]
     Indication: NASAL SINUS CANCER
     Dosage: 150 MG, UID/QD
     Route: 048
     Dates: start: 20100823

REACTIONS (2)
  - OFF LABEL USE [None]
  - NEOPLASM MALIGNANT [None]
